FAERS Safety Report 7423307-2 (Version None)
Quarter: 2011Q2

REPORT INFORMATION
  Report Type: 
  Country: None (occurrence: None)
  Receive Date: 20110419
  Receipt Date: 20110414
  Transmission Date: 20111010
  Serious: Yes (Death, Life-Threatening, Hospitalization)
  Sender: FDA-Public Use
  Company Number: PL-ELI_LILLY_AND_COMPANY-10-11-00168

PATIENT
  Sex: Male
  Weight: 54 kg

DRUGS (16)
  1. PEMETREXED [Suspect]
     Indication: NON-SMALL CELL LUNG CANCER
     Dosage: 850 MG,1 IN 3 WK
     Route: 042
     Dates: start: 20100416, end: 20100618
  2. KETONAL [Concomitant]
     Indication: PRODUCT USED FOR UNKNOWN INDICATION
     Dosage: 100 MG, UNK
     Route: 048
     Dates: start: 20100623, end: 20100707
  3. POLPRAZOL [Concomitant]
     Indication: PRODUCT USED FOR UNKNOWN INDICATION
     Dosage: 20 MG, UNK
     Route: 048
     Dates: start: 20100623, end: 20100707
  4. LOPERAMIDE [Concomitant]
     Dosage: UNK, UNKNOWN
     Route: 048
     Dates: start: 20100705, end: 20100707
  5. APHTIN [Concomitant]
     Indication: ORAL DISORDER
     Dosage: UNK, UNKNOWN
     Route: 065
     Dates: start: 20100707, end: 20100707
  6. MORPHINE SULFATE [Concomitant]
     Indication: PRODUCT USED FOR UNKNOWN INDICATION
     Dosage: 60 MG, UNKNOWN
     Route: 065
     Dates: start: 20100407, end: 20100707
  7. CISPLATIN [Suspect]
     Indication: NON-SMALL CELL LUNG CANCER
     Dosage: 127 MG,1 IN 3 WK
     Route: 042
     Dates: start: 20100416, end: 20100618
  8. SODIUM CHLORIDE SOLUTION [Concomitant]
     Indication: PRODUCT USED FOR UNKNOWN INDICATION
     Dosage: 500 ML, UNK
     Route: 042
     Dates: start: 20100705, end: 20100706
  9. NECITUMUMAB (11F8) (LY3012211) [Suspect]
     Indication: NON-SMALL CELL LUNG CANCER
     Dosage: 800 MG,2 IN 3 WK
     Route: 042
     Dates: start: 20100416, end: 20100625
  10. KALIUM /00031402/ [Concomitant]
     Indication: PRODUCT USED FOR UNKNOWN INDICATION
     Dosage: 2 D/F, 2/D
     Route: 042
     Dates: start: 20100706, end: 20100706
  11. NITRO MACK [Concomitant]
     Indication: PRODUCT USED FOR UNKNOWN INDICATION
     Dosage: 1 D/F, DAILY (1/D)
     Route: 042
     Dates: start: 20100706, end: 20100706
  12. NIFUROXA [Concomitant]
     Dosage: UNK, 2/D
     Route: 048
     Dates: start: 20100705, end: 20100707
  13. SEVREDOL [Concomitant]
     Indication: PRODUCT USED FOR UNKNOWN INDICATION
     Dosage: 20 MG, AS NEEDED
     Route: 065
     Dates: start: 20100705, end: 20100707
  14. NIFUROXA [Concomitant]
     Indication: DIARRHOEA
     Dosage: UNK, 2/D
     Route: 048
     Dates: start: 20100701, end: 20100702
  15. LOPERAMIDE [Concomitant]
     Indication: DIARRHOEA
     Dosage: UNK, UNKNOWN
     Route: 048
     Dates: start: 20100701, end: 20100702
  16. NYSTATIN [Concomitant]
     Indication: PRODUCT USED FOR UNKNOWN INDICATION
     Dosage: UNK, UNKNOWN
     Route: 048
     Dates: start: 20100705, end: 20100707

REACTIONS (5)
  - DISEASE PROGRESSION [None]
  - PULMONARY OEDEMA [None]
  - HYPOVOLAEMIC SHOCK [None]
  - GENERAL PHYSICAL HEALTH DETERIORATION [None]
  - SHOCK [None]
